FAERS Safety Report 8222787-2 (Version None)
Quarter: 2012Q1

REPORT INFORMATION
  Report Type: 
  Country: None (occurrence: None)
  Receive Date: 20120314
  Receipt Date: 20120302
  Transmission Date: 20120608
  Serious: Yes (Other)
  Sender: FDA-Public Use
  Company Number: DSA_55092_2012

PATIENT
  Sex: Female

DRUGS (1)
  1. FLAGYL [Suspect]
     Indication: BACTERIAL INFECTION
     Dosage: (DF)

REACTIONS (4)
  - POLYNEUROPATHY [None]
  - PAIN [None]
  - DEPRESSION [None]
  - ANXIETY [None]
